FAERS Safety Report 6095206-2 (Version None)
Quarter: 2009Q1

REPORT INFORMATION
  Report Type: 
  Country: None (occurrence: None)
  Receive Date: 20090227
  Receipt Date: 20080212
  Transmission Date: 20090719
  Serious: No
  Sender: FDA-Public Use
  Company Number: A0709103A

PATIENT
  Age: 30 Year
  Sex: Female

DRUGS (10)
  1. LAMICTAL [Suspect]
     Indication: BIPOLAR DISORDER
     Dosage: 25MG PER DAY
     Route: 048
     Dates: start: 20080204
  2. LEXAPRO [Concomitant]
  3. WELLBUTRIN [Concomitant]
  4. XANAX [Concomitant]
  5. VASODIN [Concomitant]
  6. IMITREX [Concomitant]
  7. WOMENS MULTIVITAMIN [Concomitant]
  8. CHROMIUM PICOLINATE [Concomitant]
  9. FLAX SEED OIL [Concomitant]
  10. ASCORBIC ACID [Concomitant]

REACTIONS (3)
  - BURNING SENSATION [None]
  - DERMATITIS ACNEIFORM [None]
  - PRURITUS [None]
